FAERS Safety Report 14325047 (Version 5)
Quarter: 2019Q1

REPORT INFORMATION
  Report Type: Spontaneous
  Country: US (occurrence: US)
  Receive Date: 20171226
  Receipt Date: 20190212
  Transmission Date: 20190417
  Serious: Yes (Other)
  Sender: FDA-Public Use
  Company Number: US-CLOVIS ONCOLOGY-CLO-2017-001425

PATIENT
  Age: 78 Year
  Sex: Female

DRUGS (7)
  1. VITAMINS NOS [Concomitant]
     Active Substance: VITAMINS
     Indication: PRODUCT USED FOR UNKNOWN INDICATION
  2. RUBRACA [Suspect]
     Active Substance: RUCAPARIB CAMSYLATE
     Indication: METASTATIC LYMPHOMA
     Dosage: 300 MG, BID
     Route: 048
  3. SIMVASTATIN. [Concomitant]
     Active Substance: SIMVASTATIN
     Indication: PRODUCT USED FOR UNKNOWN INDICATION
  4. RUBRACA [Suspect]
     Active Substance: RUCAPARIB CAMSYLATE
     Indication: OVARIAN CANCER
     Dosage: 600 MG, BID
     Route: 048
     Dates: start: 201711, end: 2017
  5. RUBRACA [Suspect]
     Active Substance: RUCAPARIB CAMSYLATE
     Dosage: 300 MG, QD
     Dates: start: 2018
  6. METOPROLOL. [Concomitant]
     Active Substance: METOPROLOL
     Indication: PALPITATIONS
  7. RUBRACA [Suspect]
     Active Substance: RUCAPARIB CAMSYLATE
     Indication: LUNG CANCER METASTATIC
     Dosage: 300 MG, BID
     Dates: start: 20171111, end: 2018

REACTIONS (18)
  - Mean platelet volume increased [Unknown]
  - Lymphocyte count decreased [Unknown]
  - Monocyte count increased [Recovered/Resolved]
  - Diarrhoea [Not Recovered/Not Resolved]
  - Liver function test abnormal [Recovering/Resolving]
  - Liver function test increased [Unknown]
  - Vomiting [Unknown]
  - Hypertension [Unknown]
  - Anaemia [Recovered/Resolved]
  - Dysgeusia [Recovering/Resolving]
  - Nausea [Unknown]
  - Liver disorder [Unknown]
  - Eosinophil count increased [Unknown]
  - Glomerular filtration rate decreased [Unknown]
  - Metastasis [Unknown]
  - Adverse event [Unknown]
  - Photosensitivity reaction [Not Recovered/Not Resolved]
  - Prescribed underdose [Unknown]

NARRATIVE: CASE EVENT DATE: 2017
